FAERS Safety Report 5371076-2 (Version None)
Quarter: 2007Q2

REPORT INFORMATION
  Report Type: 
  Country: None (occurrence: None)
  Receive Date: 20070622
  Receipt Date: 20070606
  Transmission Date: 20071010
  Serious: Yes (Death)
  Sender: FDA-Public Use
  Company Number: 6033208

PATIENT
  Age: 77 Year
  Sex: Female

DRUGS (8)
  1. CARDENSIEL  1.25 MG (1,25 MG, TABLET) ( BISOPROLOL FUMARATE) [Suspect]
     Indication: DRUG USE FOR UNKNOWN INDICATION
     Dosage: 1,25 MG (1,25 MG, 1 D), ORAL
     Route: 048
     Dates: start: 20070108
  2. CORDARONE [Suspect]
     Indication: DRUG USE FOR UNKNOWN INDICATION
     Dosage: 1 DOSAGE FORMS (1 DOSAGE FORMS, 1 D), ORAL
     Route: 048
     Dates: start: 20061121, end: 20070108
  3. PRETERAX (TABLET) (INDAPAMIDE, PERINDOPRIL ERBUMINE) [Concomitant]
  4. PREVISCAN (TABLET ) (FLUINDIONE) [Concomitant]
  5. FUROSEMIDE [Concomitant]
  6. DIFFU K (CAPSULE) (POTASSIUM  CHLORIDE) [Concomitant]
  7. GLUCOPHAGE 850 MG (METFORMIN) [Concomitant]
  8. AMARYL [Concomitant]

REACTIONS (11)
  - APALLIC SYNDROME [None]
  - CARDIO-RESPIRATORY ARREST [None]
  - CARDIOGENIC SHOCK [None]
  - COMA [None]
  - CONDUCTION DISORDER [None]
  - DEHYDRATION [None]
  - HAEMODIALYSIS [None]
  - HEPATIC ENCEPHALOPATHY [None]
  - HYPERTROPHIC CARDIOMYOPATHY [None]
  - LACTIC ACIDOSIS [None]
  - RENAL FAILURE ACUTE [None]
